FAERS Safety Report 23548100 (Version 3)
Quarter: 2024Q2

REPORT INFORMATION
  Report Type: Other
  Country: US (occurrence: US)
  Receive Date: 20240221
  Receipt Date: 20240511
  Transmission Date: 20240715
  Serious: No
  Sender: FDA-Public Use
  Company Number: US-TRAVERE-2024TVT00143

PATIENT
  Sex: Male

DRUGS (5)
  1. FILSPARI [Suspect]
     Active Substance: SPARSENTAN
     Indication: IgA nephropathy
     Route: 048
     Dates: start: 20240128, end: 20240301
  2. FILSPARI [Suspect]
     Active Substance: SPARSENTAN
     Route: 048
     Dates: start: 20240301
  3. VELTASSA [Concomitant]
     Active Substance: PATIROMER
  4. ATORVASTATIN [Concomitant]
     Active Substance: ATORVASTATIN
  5. ESCITALOPRAM [Concomitant]
     Active Substance: ESCITALOPRAM OXALATE

REACTIONS (4)
  - Liver function test abnormal [Unknown]
  - Localised infection [Unknown]
  - Wrong technique in product usage process [Unknown]
  - Liver function test increased [Unknown]
